FAERS Safety Report 24855994 (Version 1)
Quarter: 2025Q1

REPORT INFORMATION
  Report Type: Report from Study
  Country: US (occurrence: None)
  Receive Date: 20250117
  Receipt Date: 20250117
  Transmission Date: 20250409
  Serious: Yes (Hospitalization)
  Sender: ADAMAS PHARMA
  Company Number: US-ADAMAS Pharma-ADM202408-003239

PATIENT
  Age: 73 Year
  Sex: Male

DRUGS (9)
  1. GOCOVRI [Suspect]
     Active Substance: AMANTADINE
     Indication: Dyskinesia
     Dosage: 274MG
     Route: 048
     Dates: start: 20240726, end: 20250103
  2. GOCOVRI [Suspect]
     Active Substance: AMANTADINE
     Indication: Parkinson^s disease
  3. CARBIDOPA\LEVODOPA [Concomitant]
     Active Substance: CARBIDOPA\LEVODOPA
  4. CARVEDILOL [Concomitant]
     Active Substance: CARVEDILOL
  5. DIGOXIN [Concomitant]
     Active Substance: DIGOXIN
  6. ELIQUIS [Concomitant]
     Active Substance: APIXABAN
  7. LISINOPRIL [Concomitant]
     Active Substance: LISINOPRIL
  8. ROSUVASTATIN [Concomitant]
     Active Substance: ROSUVASTATIN
  9. SELEGILINE [Concomitant]
     Active Substance: SELEGILINE

REACTIONS (3)
  - Unresponsive to stimuli [Recovered/Resolved]
  - Hypersomnia [Not Recovered/Not Resolved]
  - Abnormal behaviour [Recovered/Resolved]
